FAERS Safety Report 16317509 (Version 2)
Quarter: 2019Q3

REPORT INFORMATION
  Report Type: Spontaneous
  Country: FR (occurrence: FR)
  Receive Date: 20190516
  Receipt Date: 20190919
  Transmission Date: 20191004
  Serious: Yes (Death, Other)
  Sender: FDA-Public Use
  Company Number: FR-ROCHE-2314165

PATIENT
  Age: 25 Year
  Sex: Male
  Weight: 61.5 kg

DRUGS (3)
  1. MULTICROM [Concomitant]
     Active Substance: CROMOLYN SODIUM
     Route: 065
  2. HERCEPTIN [Suspect]
     Active Substance: TRASTUZUMAB
     Indication: OESOPHAGEAL ADENOCARCINOMA
     Route: 041
     Dates: start: 201808, end: 20190312
  3. XELODA [Suspect]
     Active Substance: CAPECITABINE
     Indication: OESOPHAGEAL ADENOCARCINOMA
     Route: 048
     Dates: start: 201808, end: 20190322

REACTIONS (5)
  - Cardiac arrest [Recovered/Resolved with Sequelae]
  - Cardiac arrest [Recovered/Resolved]
  - Hypoxic-ischaemic encephalopathy [Fatal]
  - Posterior reversible encephalopathy syndrome [Fatal]
  - Clonus [Recovered/Resolved]

NARRATIVE: CASE EVENT DATE: 20190322
